FAERS Safety Report 14735673 (Version 4)
Quarter: 2018Q4

REPORT INFORMATION
  Report Type: Spontaneous
  Country: US (occurrence: US)
  Receive Date: 20180409
  Receipt Date: 20181226
  Transmission Date: 20190204
  Serious: Yes (Other)
  Sender: FDA-Public Use
  Company Number: US-PFIZER INC-2018141119

PATIENT
  Age: 66 Year
  Sex: Male
  Weight: 47.2 kg

DRUGS (46)
  1. PREVACID 24 HR [Suspect]
     Active Substance: LANSOPRAZOLE
     Dosage: UNK
     Route: 065
     Dates: start: 201001, end: 201605
  2. PRILOSEC [Suspect]
     Active Substance: OMEPRAZOLE MAGNESIUM
     Dosage: 20 MG, 1X/DAY
     Route: 048
     Dates: start: 20070713
  3. PRILOSEC OTC [Suspect]
     Active Substance: OMEPRAZOLE MAGNESIUM
     Dosage: UNK
     Route: 048
     Dates: start: 201001, end: 201605
  4. ACETAMINOPHEN. [Concomitant]
     Active Substance: ACETAMINOPHEN
     Indication: ANALGESIC THERAPY
     Dosage: UNK
     Route: 065
     Dates: start: 201806
  5. MAGNESIUM [Concomitant]
     Active Substance: MAGNESIUM
     Indication: BLOOD MAGNESIUM DECREASED
     Dosage: UNK
     Dates: start: 2014
  6. COENZYME Q10 [Concomitant]
     Active Substance: UBIDECARENONE
     Indication: CARDIAC DISORDER
     Dosage: UNK
     Dates: start: 2012
  7. AMLODIPINE BESYLATE. [Concomitant]
     Active Substance: AMLODIPINE BESYLATE
     Dosage: UNK
     Route: 048
     Dates: start: 20171104
  8. NEXIUM [Suspect]
     Active Substance: ESOMEPRAZOLE MAGNESIUM
     Dosage: UNK
     Route: 048
     Dates: start: 201001, end: 201605
  9. BENAZEPRIL [Concomitant]
     Active Substance: BENAZEPRIL HYDROCHLORIDE
     Indication: HYPERTENSION
     Dosage: UNK
     Dates: start: 20150226, end: 20160506
  10. AMOXICILLIN. [Concomitant]
     Active Substance: AMOXICILLIN
     Dosage: 500 MG, 1X/DAY
     Route: 048
     Dates: start: 20120214
  11. DIGESTIVE ADVANTAGE [Concomitant]
     Indication: DYSPEPSIA
     Dosage: UNK
     Dates: start: 2008
  12. NEXIUM 24HR [Suspect]
     Active Substance: ESOMEPRAZOLE MAGNESIUM
     Dosage: UNK
     Route: 048
     Dates: end: 201605
  13. PRILOSEC OTC [Suspect]
     Active Substance: OMEPRAZOLE MAGNESIUM
     Indication: GASTROOESOPHAGEAL REFLUX DISEASE
     Dosage: 20 MG, 1X/DAY
     Route: 048
     Dates: start: 2009, end: 2010
  14. COLCHICINE. [Concomitant]
     Active Substance: COLCHICINE
     Dosage: UNK
     Route: 048
     Dates: start: 20150421
  15. VANCOMYCIN HYDROCHLORIDE. [Concomitant]
     Active Substance: VANCOMYCIN HYDROCHLORIDE
     Dosage: UNK
     Route: 048
     Dates: start: 20170119
  16. DEXILANT [Suspect]
     Active Substance: DEXLANSOPRAZOLE
     Dosage: UNK
     Route: 065
     Dates: start: 201001, end: 201605
  17. PRILOSEC [Suspect]
     Active Substance: OMEPRAZOLE MAGNESIUM
     Indication: GASTROOESOPHAGEAL REFLUX DISEASE
     Dosage: 20 MG, 1X/DAY
     Route: 048
     Dates: start: 20060312, end: 20090205
  18. PRILOSEC [Suspect]
     Active Substance: OMEPRAZOLE MAGNESIUM
     Dosage: 20 MG, 1X/DAY
     Route: 065
     Dates: start: 20060312, end: 2012
  19. PRILOSEC [Suspect]
     Active Substance: OMEPRAZOLE MAGNESIUM
     Dosage: UNK
     Route: 048
     Dates: start: 201001, end: 201605
  20. PRILOSEC [Suspect]
     Active Substance: OMEPRAZOLE MAGNESIUM
     Dosage: 20 MG, 1X/DAY
     Route: 048
     Dates: start: 20130326
  21. VANCOMYCIN [Concomitant]
     Active Substance: VANCOMYCIN
     Indication: CLOSTRIDIUM DIFFICILE COLITIS
  22. FUROSEMIDE. [Concomitant]
     Active Substance: FUROSEMIDE
     Dosage: UNK
     Route: 048
     Dates: start: 20170403
  23. TYLENOL [Concomitant]
     Active Substance: ACETAMINOPHEN
     Indication: PAIN
     Dosage: UNK
     Dates: start: 201806
  24. PROTONIX [Suspect]
     Active Substance: PANTOPRAZOLE SODIUM
     Dosage: UNK
     Route: 065
     Dates: start: 201001, end: 201605
  25. VANCOMYCIN [Concomitant]
     Active Substance: VANCOMYCIN
     Indication: CLOSTRIDIUM DIFFICILE INFECTION
     Dosage: UNK
     Route: 065
     Dates: start: 20160903, end: 20170701
  26. FUROSEMIDE. [Concomitant]
     Active Substance: FUROSEMIDE
     Indication: FLUID RETENTION
     Dosage: UNK
     Dates: start: 20161123
  27. CALCIUM [Concomitant]
     Active Substance: CALCIUM
     Indication: BLOOD CALCIUM DECREASED
     Dosage: UNK
     Dates: start: 2008
  28. ESCITALOPRAM [Concomitant]
     Active Substance: ESCITALOPRAM OXALATE
     Dosage: UNK
     Route: 048
     Dates: start: 20121217
  29. LOPERAMIDE [Concomitant]
     Active Substance: LOPERAMIDE
     Dosage: UNK
     Route: 048
     Dates: start: 20150204
  30. GABAPENTIN. [Concomitant]
     Active Substance: GABAPENTIN
     Dosage: UNK
     Route: 048
     Dates: start: 20150516
  31. PREVACID [Suspect]
     Active Substance: LANSOPRAZOLE
     Dosage: UNK
     Route: 065
     Dates: start: 201001, end: 201605
  32. COENZYME Q10 [Concomitant]
     Active Substance: UBIDECARENONE
     Dosage: UNK
     Route: 065
     Dates: start: 2012
  33. WARFARIN SODIUM. [Concomitant]
     Active Substance: WARFARIN SODIUM
     Dosage: UNK
     Route: 048
     Dates: start: 20150204
  34. BENAZEPRIL HYDROCHLORIDE. [Concomitant]
     Active Substance: BENAZEPRIL HYDROCHLORIDE
     Dosage: UNK
     Route: 048
     Dates: start: 20150226
  35. CEPHALEXIN [CEFALEXIN] [Concomitant]
     Active Substance: CEPHALEXIN
     Dosage: UNK
     Route: 048
     Dates: start: 20150427
  36. NEXIUM [Suspect]
     Active Substance: ESOMEPRAZOLE MAGNESIUM
     Indication: GASTROOESOPHAGEAL REFLUX DISEASE
     Dosage: 20 MG, 1X/DAY
     Route: 048
     Dates: start: 2005, end: 2007
  37. PRILOSEC [Suspect]
     Active Substance: OMEPRAZOLE MAGNESIUM
     Indication: GASTROOESOPHAGEAL REFLUX DISEASE
     Dosage: 20 MG, 1X/DAY
     Route: 048
     Dates: start: 20060302
  38. AMOXICILLIN. [Concomitant]
     Active Substance: AMOXICILLIN
     Indication: INFECTION
     Dosage: UNK
     Dates: start: 20071125, end: 20131216
  39. ACETAMINOPHEN. [Concomitant]
     Active Substance: ACETAMINOPHEN
     Indication: PAIN
     Dosage: UNK
     Route: 065
     Dates: start: 20151224
  40. VITAMIN C [Concomitant]
     Active Substance: ASCORBIC ACID
     Dosage: UNK
     Dates: start: 20151124
  41. METHYLPREDNISOLONE. [Concomitant]
     Active Substance: METHYLPREDNISOLONE
     Dosage: UNK
     Route: 048
     Dates: start: 20150421
  42. PROTONIX [Suspect]
     Active Substance: PANTOPRAZOLE SODIUM
     Dosage: 40 MG, 1X/DAY
     Route: 048
     Dates: start: 20070307
  43. ASCORBIC ACID. [Concomitant]
     Active Substance: ASCORBIC ACID
     Dosage: UNK
     Dates: start: 20151124
  44. VITAMIN D [Concomitant]
     Active Substance: CHOLECALCIFEROL
     Dosage: UNK
     Route: 048
     Dates: start: 20150206
  45. TEMAZEPAM. [Concomitant]
     Active Substance: TEMAZEPAM
     Dosage: UNK
     Route: 048
     Dates: start: 20121215
  46. INDOMETHACIN. [Concomitant]
     Active Substance: INDOMETHACIN
     Dosage: UNK
     Route: 048
     Dates: start: 20150427

REACTIONS (2)
  - Acute kidney injury [Not Recovered/Not Resolved]
  - Chronic kidney disease [Not Recovered/Not Resolved]

NARRATIVE: CASE EVENT DATE: 20110923
